FAERS Safety Report 8380925-5 (Version None)
Quarter: 2012Q2

REPORT INFORMATION
  Report Type: 
  Country: None (occurrence: None)
  Receive Date: 20120523
  Receipt Date: 20120515
  Transmission Date: 20120825
  Serious: Yes (Hospitalization)
  Sender: FDA-Public Use
  Company Number: US-VERTEX PHARMACEUTICALS INC.-AE-2012-005946

PATIENT
  Sex: Male

DRUGS (3)
  1. PEGASYS [Concomitant]
     Indication: HEPATITIS C
     Dates: start: 20110801
  2. RIBAVIRIN [Concomitant]
     Indication: HEPATITIS C
     Dates: start: 20110801
  3. INCIVEK [Suspect]
     Indication: HEPATITIS C
     Dates: start: 20110801

REACTIONS (13)
  - FEBRILE NEUTROPENIA [None]
  - RASH GENERALISED [None]
  - STAPHYLOCOCCAL INFECTION [None]
  - PRURITUS [None]
  - ORAL CANDIDIASIS [None]
  - COUGH [None]
  - PSORIASIS [None]
  - HYPOKALAEMIA [None]
  - CELLULITIS [None]
  - SKIN ULCER [None]
  - MALAISE [None]
  - PANCYTOPENIA [None]
  - DIVERTICULUM [None]
